FAERS Safety Report 8615065-0 (Version None)
Quarter: 2012Q3

REPORT INFORMATION
  Report Type: 
  Country: None (occurrence: None)
  Receive Date: 20120823
  Receipt Date: 20120820
  Transmission Date: 20120928
  Serious: Yes (Other)
  Sender: FDA-Public Use
  Company Number: PHFR2012GB003769

PATIENT
  Sex: Male
  Weight: 100.5 kg

DRUGS (1)
  1. TOBI [Suspect]
     Indication: CYSTIC FIBROSIS
     Dosage: 112 MG
     Dates: start: 20120626, end: 20120627

REACTIONS (2)
  - CHEST DISCOMFORT [None]
  - BRONCHOSPASM [None]
